FAERS Safety Report 23268697 (Version 1)
Quarter: 2023Q4

REPORT INFORMATION
  Report Type: Other
  Country: US (occurrence: None)
  Receive Date: 20231206
  Receipt Date: 20231206
  Transmission Date: 20240110
  Serious: No
  Sender: FDA-Public Use
  Company Number: US-ROCHE-3469052

PATIENT
  Age: 46 Year
  Sex: Female

DRUGS (4)
  1. OCREVUS [Suspect]
     Active Substance: OCRELIZUMAB
     Indication: Relapsing multiple sclerosis
     Dosage: THEN 600 MG EVERY 6 MONTHS
     Route: 042
     Dates: start: 202104
  2. PROTONIX [Concomitant]
     Active Substance: PANTOPRAZOLE SODIUM
  3. CYCLOBENZAPRINE [Concomitant]
     Active Substance: CYCLOBENZAPRINE
  4. SOLU-MEDROL [Concomitant]
     Active Substance: METHYLPREDNISOLONE SODIUM SUCCINATE

REACTIONS (17)
  - COVID-19 [Unknown]
  - Weight increased [Unknown]
  - Thyroid mass [Unknown]
  - Hypoaesthesia [Unknown]
  - Headache [Recovered/Resolved]
  - Pollakiuria [Unknown]
  - Pain [Unknown]
  - Multiple sclerosis [Unknown]
  - Muscle spasms [Unknown]
  - Urinary tract infection bacterial [Unknown]
  - Goitre [Unknown]
  - Obesity [Unknown]
  - Obstructive sleep apnoea syndrome [Unknown]
  - Stress urinary incontinence [Unknown]
  - Varicose vein [Unknown]
  - Vitamin D deficiency [Unknown]
  - Off label use [Unknown]

NARRATIVE: CASE EVENT DATE: 20220901
